FAERS Safety Report 8337854-2 (Version None)
Quarter: 2012Q2

REPORT INFORMATION
  Report Type: 
  Country: None (occurrence: None)
  Receive Date: 20120504
  Receipt Date: 20120423
  Transmission Date: 20120825
  Serious: Yes (Hospitalization)
  Sender: FDA-Public Use
  Company Number: US-ELI_LILLY_AND_COMPANY-US201203002806

PATIENT
  Sex: Female

DRUGS (1)
  1. FORTEO [Suspect]
     Indication: OSTEOPOROSIS
     Dosage: UNK, UNKNOWN
     Route: 065
     Dates: start: 20120223, end: 20120413

REACTIONS (12)
  - EMOTIONAL DISTRESS [None]
  - CHRONIC OBSTRUCTIVE PULMONARY DISEASE [None]
  - PAIN [None]
  - ASTHENIA [None]
  - TENSION [None]
  - DYSPNOEA [None]
  - HEADACHE [None]
  - MALAISE [None]
  - VERTIGO [None]
  - BRONCHITIS [None]
  - FEELING ABNORMAL [None]
  - MUSCLE STRAIN [None]
